FAERS Safety Report 10385119 (Version 3)
Quarter: 2014Q4

REPORT INFORMATION
  Report Type: Report from Study
  Country: US (occurrence: US)
  Receive Date: 20140814
  Receipt Date: 20141006
  Transmission Date: 20150528
  Serious: Yes (Other)
  Sender: FDA-Public Use
  Company Number: US-SA-2014SA096297

PATIENT
  Age: 49 Year
  Sex: Female

DRUGS (1)
  1. AUBAGIO [Suspect]
     Active Substance: TERIFLUNOMIDE
     Indication: MULTIPLE SCLEROSIS
     Route: 048
     Dates: start: 20140603, end: 20140918

REACTIONS (8)
  - Foot fracture [Not Recovered/Not Resolved]
  - Abdominal discomfort [Recovered/Resolved]
  - Weight increased [Not Recovered/Not Resolved]
  - Insomnia [Recovered/Resolved]
  - Nausea [Recovered/Resolved]
  - Swelling [Not Recovered/Not Resolved]
  - Peripheral swelling [Recovered/Resolved]
  - Sensory loss [Not Recovered/Not Resolved]
